FAERS Safety Report 20114169 (Version 1)
Quarter: 2021Q4

REPORT INFORMATION
  Report Type: Spontaneous
  Country: NL (occurrence: NL)
  Receive Date: 20211125
  Receipt Date: 20211125
  Transmission Date: 20220303
  Serious: Yes (Other)
  Sender: FDA-Public Use
  Company Number: None

PATIENT
  Sex: Female
  Weight: 59 kg

DRUGS (3)
  1. TOPAMAX [Suspect]
     Active Substance: TOPIRAMATE
     Indication: Cluster headache
     Dosage: 1X PER DAY 12.5 MG (CAPSULES SPLIT)
     Route: 048
     Dates: start: 20211012
  2. HYDROXOCOBALAMIN [Concomitant]
     Active Substance: HYDROXOCOBALAMIN
     Dosage: INJECTION FLUID, 500 UG/ML (MICROGRAM PER MILLILITER)
     Route: 065
  3. ETHINYL ESTRADIOL\LEVONORGESTREL [Concomitant]
     Active Substance: ETHINYL ESTRADIOL\LEVONORGESTREL
     Dosage: TABLET, 30/150 UG (MICROGRAM)

REACTIONS (13)
  - Suicidal ideation [Not Recovered/Not Resolved]
  - Neuralgia [Recovering/Resolving]
  - Nausea [Not Recovered/Not Resolved]
  - Affect lability [Not Recovered/Not Resolved]
  - Tinnitus [Not Recovered/Not Resolved]
  - Irritability [Not Recovered/Not Resolved]
  - Coordination abnormal [Recovering/Resolving]
  - Confusional state [Not Recovered/Not Resolved]
  - Abdominal distension [Not Recovered/Not Resolved]
  - Dizziness [Recovering/Resolving]
  - Somnolence [Not Recovered/Not Resolved]
  - Speech disorder [Not Recovered/Not Resolved]
  - Paraesthesia [Not Recovered/Not Resolved]
